FAERS Safety Report 8317419-9 (Version None)
Quarter: 2012Q2

REPORT INFORMATION
  Report Type: 
  Country: None (occurrence: None)
  Receive Date: 20120427
  Receipt Date: 20120417
  Transmission Date: 20120825
  Serious: Yes (Other)
  Sender: FDA-Public Use
  Company Number: US-JNJFOC-20120400709

PATIENT
  Age: 56 Year
  Sex: Female
  Weight: 86.64 kg

DRUGS (6)
  1. METHOTREXATE [Concomitant]
     Route: 065
  2. REMICADE [Suspect]
     Indication: RHEUMATOID ARTHRITIS
     Route: 042
  3. REMICADE [Suspect]
     Dosage: 45TH TREATMENT
     Route: 042
     Dates: start: 20120215
  4. REMICADE [Suspect]
     Dosage: 46TH TREATMENT
     Route: 042
     Dates: start: 20120328
  5. FOLIC ACID [Concomitant]
     Route: 065
  6. HYDROCODONE [Concomitant]
     Indication: BACK PAIN
     Route: 065

REACTIONS (1)
  - CERVICAL SPINAL STENOSIS [None]
